FAERS Safety Report 24378863 (Version 1)
Quarter: 2024Q3

REPORT INFORMATION
  Report Type: Spontaneous
  Country: FR (occurrence: FR)
  Receive Date: 20240930
  Receipt Date: 20240930
  Transmission Date: 20241017
  Serious: Yes (Other)
  Sender: NOVARTIS
  Company Number: None

PATIENT
  Age: 70 Year
  Sex: Female

DRUGS (3)
  1. RYDAPT [Suspect]
     Active Substance: MIDOSTAURIN
     Indication: Mastocytic leukaemia
     Dosage: 150 MG, QD
     Route: 048
     Dates: start: 202301, end: 202310
  2. RYDAPT [Suspect]
     Active Substance: MIDOSTAURIN
     Dosage: 100 MG, QD
     Route: 048
     Dates: start: 202311, end: 202402
  3. RYDAPT [Suspect]
     Active Substance: MIDOSTAURIN
     Dosage: 150 MG, QD
     Route: 048
     Dates: start: 202402

REACTIONS (1)
  - Anaemia [Recovering/Resolving]

NARRATIVE: CASE EVENT DATE: 20230121
